FAERS Safety Report 15426094 (Version 1)
Quarter: 2018Q3

REPORT INFORMATION
  Report Type: Spontaneous
  Country: IT (occurrence: IT)
  Receive Date: 20180925
  Receipt Date: 20180925
  Transmission Date: 20181010
  Serious: Yes (Hospitalization)
  Sender: FDA-Public Use
  Company Number: IT-GUERBET-IT-20180163

PATIENT
  Age: 13 Year

DRUGS (2)
  1. DOTAREM [Suspect]
     Active Substance: GADOTERATE MEGLUMINE
     Indication: PRODUCT USED FOR UNKNOWN INDICATION
     Route: 065
  2. DOTAREM [Suspect]
     Active Substance: GADOTERATE MEGLUMINE
     Dosage: ()

REACTIONS (7)
  - Laryngospasm [Unknown]
  - Hypotension [Unknown]
  - Cyanosis [Unknown]
  - Rash [Unknown]
  - Dyspnoea [Unknown]
  - Vomiting [Unknown]
  - Nausea [Unknown]
